FAERS Safety Report 11311192 (Version 1)
Quarter: 2015Q3

REPORT INFORMATION
  Report Type: Report from Study
  Country: FR (occurrence: FR)
  Receive Date: 20150727
  Receipt Date: 20150727
  Transmission Date: 20151125
  Serious: Yes (Other)
  Sender: FDA-Public Use
  Company Number: FR-ROCHE-1611214

PATIENT
  Sex: Female

DRUGS (4)
  1. TRASTUZUMAB [Suspect]
     Active Substance: TRASTUZUMAB
     Indication: BREAST CANCER METASTATIC
     Dosage: LOADING DOSE
     Route: 040
  2. TRASTUZUMAB [Suspect]
     Active Substance: TRASTUZUMAB
     Dosage: LOADING DOSE
     Route: 042
  3. CAPECITABINE. [Suspect]
     Active Substance: CAPECITABINE
     Indication: BREAST CANCER METASTATIC
     Dosage: 2000-2500MG/M2 PER DAY
     Route: 048
  4. LAPATINIB [Suspect]
     Active Substance: LAPATINIB
     Indication: BREAST CANCER METASTATIC
     Route: 048

REACTIONS (16)
  - Diarrhoea [Unknown]
  - Asthenia [Unknown]
  - Pulmonary embolism [Unknown]
  - Decreased appetite [Unknown]
  - Palmar-plantar erythrodysaesthesia syndrome [Unknown]
  - Aspartate aminotransferase increased [Unknown]
  - Hyperbilirubinaemia [Unknown]
  - Cardiac disorder [Unknown]
  - Mucosal inflammation [Unknown]
  - Alanine aminotransferase increased [Unknown]
  - Neutropenia [Unknown]
  - Pyrexia [Unknown]
  - Rash [Unknown]
  - Fatigue [Unknown]
  - Nausea [Unknown]
  - Vomiting [Unknown]
